FAERS Safety Report 6822111-3 (Version None)
Quarter: 2010Q3

REPORT INFORMATION
  Report Type: 
  Country: None (occurrence: None)
  Receive Date: 20100706
  Receipt Date: 20100625
  Transmission Date: 20110219
  Serious: Yes (Disabling, Other)
  Sender: FDA-Public Use
  Company Number: 2010MA000070

PATIENT
  Age: 47 Year
  Sex: Male

DRUGS (5)
  1. VENLAFAXINE HCL [Suspect]
     Indication: DEPRESSED MOOD
     Dosage: 150 MG; BID; PO
     Route: 048
     Dates: start: 20100409, end: 20100613
  2. LEVOTHYROXINE SODIUM [Concomitant]
  3. ISPAGHULA [Concomitant]
  4. OLANZAPINE [Concomitant]
  5. MIRTAZAPINE [Concomitant]

REACTIONS (4)
  - CONDITION AGGRAVATED [None]
  - DEPRESSED MOOD [None]
  - MEDICATION RESIDUE [None]
  - TABLET ISSUE [None]
